FAERS Safety Report 4795404-1 (Version None)
Quarter: 2005Q4

REPORT INFORMATION
  Report Type: 
  Country: None (occurrence: None)
  Receive Date: 20051007
  Receipt Date: 20050928
  Transmission Date: 20060501
  Serious: Yes (Other)
  Sender: FDA-Public Use
  Company Number: 200512774GDS

PATIENT
  Age: 9 Year
  Sex: Female

DRUGS (3)
  1. ACETYLSALICYLIC ACID SRT [Suspect]
     Indication: JUVENILE ARTHRITIS
     Dates: start: 20030101
  2. METHOTREXATE [Suspect]
     Indication: JUVENILE ARTHRITIS
  3. PREDNISOLONE [Suspect]
     Indication: JUVENILE ARTHRITIS

REACTIONS (1)
  - HODGKIN'S DISEASE NODULAR SCLEROSIS STAGE UNSPECIFIED [None]
